FAERS Safety Report 24064996 (Version 3)
Quarter: 2024Q3

REPORT INFORMATION
  Report Type: Report from Study
  Country: CN (occurrence: CN)
  Receive Date: 20240709
  Receipt Date: 20240821
  Transmission Date: 20241016
  Serious: Yes (Death, Life-Threatening, Hospitalization)
  Sender: SANOFI AVENTIS
  Company Number: CN-SA-2024SA168393

PATIENT
  Age: 69 Year
  Sex: Male

DRUGS (21)
  1. DOCETAXEL [Suspect]
     Active Substance: DOCETAXEL\DOCETAXEL ANHYDROUS
     Indication: Non-small cell lung cancer
     Dosage: 129 MG, Q3W
     Route: 041
     Dates: start: 20240517, end: 20240517
  2. INSULIN ASPART\INSULIN DEGLUDEC [Concomitant]
     Active Substance: INSULIN ASPART\INSULIN DEGLUDEC
     Indication: Type 2 diabetes mellitus
     Dosage: 9 IU, QD
     Dates: start: 20240418, end: 20240420
  3. DAPAGLIFLOZIN [Concomitant]
     Active Substance: DAPAGLIFLOZIN
     Indication: Type 2 diabetes mellitus
     Dosage: 10 MG, QD
     Dates: start: 20240516, end: 20240519
  4. DEXAMETHASONE [Concomitant]
     Active Substance: DEXAMETHASONE
     Indication: Premedication
     Dosage: 8 MG, BID
     Dates: start: 20240516, end: 20240519
  5. INSULIN DEGLUDEC [Concomitant]
     Active Substance: INSULIN DEGLUDEC
     Indication: Type 2 diabetes mellitus
     Dosage: 10 IU, QD
     Dates: start: 2022, end: 20240516
  6. INSULIN DEGLUDEC [Concomitant]
     Active Substance: INSULIN DEGLUDEC
     Dosage: 16 IU, QD
     Dates: start: 20240516, end: 20240521
  7. INSULIN DEGLUDEC [Concomitant]
     Active Substance: INSULIN DEGLUDEC
     Dosage: 12 IU, QD
     Dates: start: 20240522
  8. INSULIN LISPRO [Concomitant]
     Active Substance: INSULIN LISPRO
     Indication: Type 2 diabetes mellitus
     Dosage: 10 IU, QD
     Dates: start: 2022, end: 20240516
  9. INSULIN LISPRO [Concomitant]
     Active Substance: INSULIN LISPRO
     Dosage: 16 IU, QD
     Dates: start: 20240516, end: 20240521
  10. INSULIN LISPRO [Concomitant]
     Active Substance: INSULIN LISPRO
     Dosage: 12 IU, TID
     Dates: start: 20240522
  11. FAMOTIDINE [Concomitant]
     Active Substance: FAMOTIDINE
     Indication: Gastrooesophageal reflux disease
     Dosage: 20 MG, TOTAL
     Dates: start: 20240517, end: 20240517
  12. PANCREATIN [Concomitant]
     Active Substance: PANCRELIPASE
     Indication: Decreased appetite
     Dosage: 0.3 G, TID
     Dates: start: 20240520, end: 20240522
  13. SODIUM CHLORIDE [Concomitant]
     Active Substance: SODIUM CHLORIDE
     Indication: Fluid replacement
     Dosage: 500 ML, TOTAL
     Dates: start: 20240517, end: 20240517
  14. TROPISETRON HYDROCHLORIDE [Concomitant]
     Active Substance: TROPISETRON HYDROCHLORIDE
     Indication: Prophylaxis of nausea and vomiting
     Dosage: 5 MG, TOTAL
     Dates: start: 20240517, end: 20240517
  15. ERYTHROPOIETIN [Concomitant]
     Active Substance: ERYTHROPOIETIN
     Indication: Anaemia
     Dosage: 72000 IU, QD
     Dates: start: 20240521, end: 20240521
  16. OMEPRAZOLE [Concomitant]
     Active Substance: OMEPRAZOLE
     Indication: Gastrointestinal disorder prophylaxis
     Dosage: 40 MG
     Dates: start: 20240523, end: 20240525
  17. MEGESTROL [Concomitant]
     Active Substance: MEGESTROL
     Indication: Decreased appetite
     Dosage: 1 DF
     Dates: start: 20240602
  18. SHEN MAI [OPHIOPOGON JAPONICUS ROOT TUBER;PANAX GINSENG] [Concomitant]
     Indication: Immune system disorder
     Dosage: 100 ML
     Dates: start: 20240523, end: 20240525
  19. SHEN MAI [OPHIOPOGON JAPONICUS ROOT TUBER;PANAX GINSENG] [Concomitant]
     Indication: Chemotherapy toxicity attenuation
  20. DENOSUMAB [Concomitant]
     Active Substance: DENOSUMAB
     Indication: Prophylaxis
     Dosage: 120 MG, QD
     Dates: start: 20240521, end: 20240521
  21. POTASSIUM CHLORIDE [Concomitant]
     Active Substance: POTASSIUM CHLORIDE
     Indication: Nutritional supplementation
     Dosage: 1.5 G
     Dates: start: 20240523, end: 20240525

REACTIONS (6)
  - Lung neoplasm malignant [Fatal]
  - Lung neoplasm malignant [Fatal]
  - Respiratory failure [Fatal]
  - Hepatic failure [Recovered/Resolved]
  - Gastrointestinal disorder [Recovered/Resolved]
  - Gastrointestinal disorder [Recovered/Resolved]

NARRATIVE: CASE EVENT DATE: 20240521
